FAERS Safety Report 5630538-0 (Version None)
Quarter: 2008Q1

REPORT INFORMATION
  Report Type: 
  Country: None (occurrence: None)
  Receive Date: 20080219
  Receipt Date: 20080214
  Transmission Date: 20080703
  Serious: Yes (Other)
  Sender: FDA-Public Use
  Company Number: A0710309A

PATIENT
  Age: 50 Year
  Sex: Male
  Weight: 130 kg

DRUGS (8)
  1. NIQUITIN 21MG [Suspect]
     Indication: SMOKING CESSATION THERAPY
     Dosage: 21MG PER DAY
     Route: 062
     Dates: start: 20070203, end: 20070211
  2. SERETIDE [Concomitant]
     Route: 055
  3. TEOLONG [Concomitant]
     Dosage: 600MGD PER DAY
     Route: 048
  4. SPIRIVA [Concomitant]
     Dosage: 18MCG PER DAY
  5. DIOVAN [Concomitant]
     Dosage: 160MGD PER DAY
     Route: 048
  6. BUPROPION HCL [Concomitant]
     Dosage: 300MGD PER DAY
     Route: 048
  7. SERTRALINE HCL [Concomitant]
     Dosage: 100MGD PER DAY
     Route: 048
  8. FRONTAL [Concomitant]
     Dosage: 2MGD PER DAY
     Route: 048

REACTIONS (4)
  - CONDITION AGGRAVATED [None]
  - FATIGUE [None]
  - HEPATIC NEOPLASM [None]
  - PAIN [None]
